FAERS Safety Report 24612060 (Version 3)
Quarter: 2025Q1

REPORT INFORMATION
  Report Type: Spontaneous
  Country: JP (occurrence: JP)
  Receive Date: 20241113
  Receipt Date: 20250123
  Transmission Date: 20250408
  Serious: Yes (Life-Threatening, Hospitalization)
  Sender: ROCHE
  Company Number: JP-CHUGAI-2024039292AA

PATIENT
  Age: 76 Year
  Sex: Male
  Weight: 49.2 kg

DRUGS (4)
  1. TECENTRIQ [Suspect]
     Active Substance: ATEZOLIZUMAB
     Indication: Lung adenocarcinoma
     Dosage: 1200 MILLIGRAM, ONCE/3WEEKS
     Route: 042
     Dates: start: 20240206, end: 20240206
  2. BEVACIZUMAB [Suspect]
     Active Substance: BEVACIZUMAB
     Indication: Lung adenocarcinoma
     Dosage: 780 MILLIGRAM/DAY
     Route: 042
     Dates: start: 20240206, end: 20240206
  3. CARBOPLATIN [Suspect]
     Active Substance: CARBOPLATIN
     Indication: Lung adenocarcinoma
     Route: 042
     Dates: start: 20240206, end: 20240206
  4. PACLITAXEL [Suspect]
     Active Substance: PACLITAXEL
     Indication: Lung adenocarcinoma
     Route: 042
     Dates: start: 20240206, end: 20240206

REACTIONS (3)
  - Bronchopleural fistula [Not Recovered/Not Resolved]
  - Infectious pleural effusion [Recovering/Resolving]
  - Pulmonary fistula [Recovering/Resolving]

NARRATIVE: CASE EVENT DATE: 20240304
